FAERS Safety Report 9653339 (Version 2)
Quarter: 2013Q4

REPORT INFORMATION
  Report Type: Report from Study
  Country: CA (occurrence: CA)
  Receive Date: 20131029
  Receipt Date: 20131029
  Transmission Date: 20140711
  Serious: Yes (Hospitalization, Other)
  Sender: FDA-Public Use
  Company Number: CA-ABBVIE-13P-028-1083479-00

PATIENT
  Age: 28 Year
  Sex: Female
  Weight: 83.99 kg

DRUGS (4)
  1. HUMIRA [Suspect]
     Indication: CROHN^S DISEASE
     Route: 058
     Dates: start: 20120430, end: 201305
  2. HYDROMORPHONE [Suspect]
     Indication: ABDOMINAL PAIN
     Route: 048
     Dates: start: 201304
  3. HYDROMORPHONE [Suspect]
     Route: 042
     Dates: start: 201304, end: 201304
  4. AZATHIOPRINE [Concomitant]
     Indication: ABDOMINAL PAIN
     Dosage: UNKNOWN
     Route: 048

REACTIONS (13)
  - Large intestinal stenosis [Recovered/Resolved]
  - Crohn^s disease [Recovered/Resolved]
  - Crohn^s disease [Unknown]
  - Abdominal distension [Recovered/Resolved]
  - Headache [Recovered/Resolved]
  - Abdominal pain [Recovered/Resolved]
  - Vomiting [Recovered/Resolved]
  - Diarrhoea [Recovered/Resolved]
  - Abdominal tenderness [Unknown]
  - Ileal stenosis [Not Recovered/Not Resolved]
  - Small intestinal stenosis [Unknown]
  - Small intestinal obstruction [Unknown]
  - Gastrointestinal inflammation [Unknown]
